FAERS Safety Report 7948868 (Version 5)
Quarter: 2013Q3

REPORT INFORMATION
  Report Type: Report from Study
  Country: CA (occurrence: CA)
  Receive Date: 20110517
  Receipt Date: 20130829
  Transmission Date: 20140515
  Serious: Yes (Hospitalization, Other)
  Sender: FDA-Public Use
  Company Number: CA-JNJFOC-20110503141

PATIENT
  Age: 57 Year
  Sex: Male
  Weight: 106.6 kg

DRUGS (6)
  1. STELARA [Suspect]
     Indication: PSORIASIS
     Route: 058
     Dates: start: 20101124
  2. STELARA [Suspect]
     Indication: PSORIASIS
     Route: 058
     Dates: start: 20110607
  3. STELARA [Suspect]
     Indication: PSORIASIS
     Route: 058
     Dates: start: 20090330, end: 20110216
  4. STELARA [Suspect]
     Indication: PSORIASIS
     Route: 058
     Dates: start: 201210
  5. LIPITOR [Concomitant]
     Indication: HYPERLIPIDAEMIA
     Dates: start: 201006
  6. VITAMIN B12 [Concomitant]

REACTIONS (1)
  - Renal cell carcinoma [Recovered/Resolved]
